FAERS Safety Report 6877732-9 (Version None)
Quarter: 2010Q3

REPORT INFORMATION
  Report Type: 
  Country: None (occurrence: None)
  Receive Date: 20100727
  Receipt Date: 20100616
  Transmission Date: 20110219
  Serious: No
  Sender: FDA-Public Use
  Company Number: US-ABBOTT-10P-163-0651888-00

PATIENT
  Sex: Male

DRUGS (3)
  1. SYNTHROID [Suspect]
     Indication: HYPOTHYROIDISM
     Dosage: 1 TABLET DAILY
     Route: 048
     Dates: start: 19920101
  2. ANDRODERM [Suspect]
     Indication: HYPOGONADISM MALE
     Dosage: 1 PATCH
     Route: 062
     Dates: start: 20091201, end: 20100520
  3. ANDRODERM [Suspect]
     Dosage: 1 PATCH DAILY
     Route: 062
     Dates: start: 20020101, end: 20030101

REACTIONS (2)
  - APPLICATION SITE RASH [None]
  - FLATULENCE [None]
